FAERS Safety Report 7656667-8 (Version None)
Quarter: 2011Q3

REPORT INFORMATION
  Report Type: 
  Country: None (occurrence: None)
  Receive Date: 20110804
  Receipt Date: 20110729
  Transmission Date: 20111222
  Serious: Yes (Other)
  Sender: FDA-Public Use
  Company Number: US-MERCK-1102USA03130

PATIENT
  Age: 74 Year
  Sex: Female
  Weight: 67 kg

DRUGS (8)
  1. IVEMEND [Suspect]
     Indication: ANTIEMETIC SUPPORTIVE CARE
     Route: 041
     Dates: start: 20110301, end: 20110301
  2. DECADRON [Concomitant]
     Route: 065
     Dates: start: 20110222
  3. IVEMEND [Suspect]
     Route: 041
  4. IVEMEND [Suspect]
     Indication: PROPHYLAXIS OF NAUSEA AND VOMITING
     Route: 041
     Dates: start: 20110301, end: 20110301
  5. IVEMEND [Suspect]
     Route: 041
     Dates: start: 20110708, end: 20110708
  6. ALOXI [Concomitant]
     Route: 065
     Dates: start: 20110222
  7. IVEMEND [Suspect]
     Route: 041
  8. IVEMEND [Suspect]
     Route: 041
     Dates: start: 20110708, end: 20110708

REACTIONS (12)
  - INFUSION SITE SWELLING [None]
  - INAPPROPRIATE SCHEDULE OF DRUG ADMINISTRATION [None]
  - BACK PAIN [None]
  - DYSPNOEA [None]
  - INFUSION SITE OEDEMA [None]
  - ERYTHEMA [None]
  - INFUSION SITE ERYTHEMA [None]
  - INFUSION SITE PAIN [None]
  - FEELING HOT [None]
  - INFUSION SITE PHLEBITIS [None]
  - INFUSION SITE REACTION [None]
  - FLUSHING [None]
